FAERS Safety Report 5114878-X (Version None)
Quarter: 2006Q3

REPORT INFORMATION
  Report Type: 
  Country: None (occurrence: None)
  Receive Date: 20060926
  Receipt Date: 20060630
  Transmission Date: 20061208
  Serious: Yes (Disabling)
  Sender: FDA-Public Use
  Company Number: 2006SE03669

PATIENT
  Age: 61 Year
  Sex: Male

DRUGS (1)
  1. BLOPRESS [Suspect]
     Indication: HYPERTENSION
     Route: 048

REACTIONS (2)
  - DIALYSIS [None]
  - OEDEMA [None]
